FAERS Safety Report 7162081-4 (Version None)
Quarter: 2010Q4

REPORT INFORMATION
  Report Type: 
  Country: None (occurrence: None)
  Receive Date: 20101215
  Receipt Date: 20101202
  Transmission Date: 20110411
  Serious: Yes (Other)
  Sender: FDA-Public Use
  Company Number: US-ROCHE-724518

PATIENT
  Sex: Male
  Weight: 77.1 kg

DRUGS (1)
  1. ACCUTANE [Suspect]
     Indication: ACNE
     Route: 048
     Dates: start: 20040917, end: 20041101

REACTIONS (7)
  - COLITIS ULCERATIVE [None]
  - DEPRESSION [None]
  - INFLAMMATORY BOWEL DISEASE [None]
  - INTESTINAL HAEMORRHAGE [None]
  - INTESTINAL OBSTRUCTION [None]
  - ORAL HERPES [None]
  - SUICIDAL IDEATION [None]
